FAERS Safety Report 14197071 (Version 1)
Quarter: 2017Q4

REPORT INFORMATION
  Report Type: Spontaneous
  Country: US (occurrence: US)
  Receive Date: 20171116
  Receipt Date: 20171116
  Transmission Date: 20180321
  Serious: No
  Sender: FDA-Public Use
  Company Number: US-BIOGEN-2013BI030108

PATIENT
  Sex: Female

DRUGS (2)
  1. AMPYRA [Concomitant]
     Active Substance: DALFAMPRIDINE
     Indication: PRODUCT USED FOR UNKNOWN INDICATION
     Route: 065
  2. AVONEX [Suspect]
     Active Substance: INTERFERON BETA-1A
     Indication: MULTIPLE SCLEROSIS
     Route: 030
     Dates: start: 20120523

REACTIONS (6)
  - Hypoaesthesia [Unknown]
  - Influenza like illness [Unknown]
  - Central nervous system lesion [Unknown]
  - Burning sensation [Unknown]
  - Gait disturbance [Unknown]
  - Multiple sclerosis relapse [Unknown]
